FAERS Safety Report 26073679 (Version 1)
Quarter: 2025Q4

REPORT INFORMATION
  Report Type: Spontaneous
  Country: KR (occurrence: KR)
  Receive Date: 20251121
  Receipt Date: 20251121
  Transmission Date: 20260118
  Serious: Yes (Other)
  Sender: BAUSCH AND LOMB
  Company Number: KR-ALFASIGMA-2025-AER-07759

PATIENT

DRUGS (2)
  1. RIFAXIMIN [Suspect]
     Active Substance: RIFAXIMIN
     Indication: Diarrhoea
     Dosage: EACH DOSE TAKEN 30 MINUTES AFTER MEALS
     Route: 048
     Dates: start: 202501, end: 2025
  2. RIFAXIMIN [Suspect]
     Active Substance: RIFAXIMIN
     Indication: Constipation
     Dosage: EACH DOSE TAKEN 30 MINUTES AFTER MEALS
     Route: 048
     Dates: start: 202503, end: 2025

REACTIONS (4)
  - Haematuria [Recovered/Resolved]
  - Off label use [Unknown]
  - Stress [Recovered/Resolved]
  - Insomnia [Recovered/Resolved]

NARRATIVE: CASE EVENT DATE: 20250101
